FAERS Safety Report 4670777-9 (Version None)
Quarter: 2005Q2

REPORT INFORMATION
  Report Type: 
  Country: None (occurrence: None)
  Receive Date: 20050523
  Receipt Date: 20050509
  Transmission Date: 20051028
  Serious: Yes (Other)
  Sender: FDA-Public Use
  Company Number: 2005073196

PATIENT
  Age: 36 Year
  Sex: Male

DRUGS (4)
  1. LYRICA [Suspect]
     Indication: EPILEPSY
     Dosage: 225MG AM; 300MG PM (525 MG), ORAL
     Route: 048
     Dates: start: 20050207
  2. TEMOZOLOMIDE            (TEMOZOLOMIDE) [Suspect]
     Indication: GLIOMA
     Dosage: ORAL
     Route: 048
     Dates: start: 20050101
  3. CARBAMAZEPINE [Concomitant]
  4. PHENYTOIN [Concomitant]

REACTIONS (4)
  - CONDITION AGGRAVATED [None]
  - DIZZINESS [None]
  - DRUG INTERACTION [None]
  - EPILEPSY [None]
